FAERS Safety Report 8578922-X (Version None)
Quarter: 2012Q3

REPORT INFORMATION
  Report Type: 
  Country: None (occurrence: None)
  Receive Date: 20120808
  Receipt Date: 20120731
  Transmission Date: 20120928
  Serious: Yes (Other)
  Sender: FDA-Public Use
  Company Number: US-BAYER-2012-078792

PATIENT
  Age: 26 Year
  Sex: Female
  Weight: 68.027 kg

DRUGS (14)
  1. YASMIN [Suspect]
     Indication: PREMENSTRUAL SYNDROME
  2. PERCOCET [Concomitant]
     Indication: PAIN
  3. YAZ [Suspect]
     Indication: CONTRACEPTION
  4. OXYCODONE HCL AND ACETAMINOPHEN [Concomitant]
     Dosage: 5-325 MG
  5. MIRENA [Concomitant]
  6. XANAX [Concomitant]
     Dosage: 0.25 MG, TID
  7. XANAX [Concomitant]
  8. TRAZODONE HYDROCHLORIDE [Concomitant]
  9. WELLBUTRIN [Concomitant]
     Indication: TOBACCO USER
  10. YASMIN [Suspect]
     Indication: CONTRACEPTION
  11. YAZ [Suspect]
     Indication: ENDOMETRIOSIS
  12. ZOLOFT [Concomitant]
     Dosage: 100 MG, DAILY
  13. NAPROSYN [Concomitant]
     Indication: PAIN
  14. FLUCONAZOLE [Concomitant]
     Dosage: 150 MG, ONE TABLET

REACTIONS (1)
  - DEEP VEIN THROMBOSIS [None]
